FAERS Safety Report 9969895 (Version 3)
Quarter: 2014Q2

REPORT INFORMATION
  Report Type: Report from Study
  Country: JP (occurrence: JP)
  Receive Date: 20140306
  Receipt Date: 20140416
  Transmission Date: 20141212
  Serious: Yes (Other)
  Sender: FDA-Public Use
  Company Number: JP-JNJFOC-20140300683

PATIENT
  Age: 80 Year
  Sex: Female

DRUGS (9)
  1. TRAMCET [Suspect]
     Indication: PAIN
     Route: 048
     Dates: start: 20121214, end: 20130827
  2. TRAMCET [Suspect]
     Indication: PAIN
     Route: 048
     Dates: start: 20130828, end: 20131020
  3. TRAMCET [Suspect]
     Indication: PAIN
     Route: 048
     Dates: start: 20121127, end: 20121213
  4. MAGMITT [Suspect]
     Indication: PROPHYLAXIS
     Route: 048
     Dates: start: 20121127, end: 20130827
  5. MAGMITT [Suspect]
     Indication: PROPHYLAXIS
     Route: 048
     Dates: start: 20130828, end: 20131020
  6. COMESGEN [Suspect]
     Indication: PAIN
     Route: 048
     Dates: start: 20121127
  7. TAKA-DIASTASE [Suspect]
     Indication: PROPHYLAXIS
     Route: 048
     Dates: start: 20130731
  8. MOBIC [Concomitant]
     Indication: PAIN
     Route: 048
     Dates: start: 20130828, end: 20131020
  9. NAUZELIN [Concomitant]
     Route: 048
     Dates: start: 20121127, end: 20121228

REACTIONS (5)
  - Nervous system disorder [Recovering/Resolving]
  - Dizziness [Recovering/Resolving]
  - Back pain [Unknown]
  - Decreased appetite [Unknown]
  - Gastritis [Recovered/Resolved]
